FAERS Safety Report 9960158 (Version 1)
Quarter: 2014Q1

REPORT INFORMATION
  Report Type: Spontaneous
  Country: US (occurrence: None)
  Receive Date: 20140228
  Receipt Date: 20140228
  Transmission Date: 20141002
  Serious: Yes (Life-Threatening, Hospitalization)
  Sender: FDA-Public Use
  Company Number: None

PATIENT
  Age: 80 Year
  Sex: Male
  Weight: 64 kg

DRUGS (1)
  1. VOTRIENT 200 MG, GLAXO SMITH KLINE [Suspect]
     Route: 048

REACTIONS (1)
  - Cerebral haemorrhage [None]
